FAERS Safety Report 25767492 (Version 1)
Quarter: 2025Q3

REPORT INFORMATION
  Report Type: Spontaneous
  Country: US (occurrence: US)
  Receive Date: 20250905
  Receipt Date: 20250905
  Transmission Date: 20251020
  Serious: Yes (Other)
  Sender: NOVO NORDISK
  Company Number: US-NOVOPROD-1509334

PATIENT
  Age: 55 Year

DRUGS (1)
  1. WEGOVY [Suspect]
     Active Substance: SEMAGLUTIDE
     Indication: Weight control
     Dosage: 1.7 MG, QW

REACTIONS (2)
  - Vertigo positional [Not Recovered/Not Resolved]
  - Vestibular migraine [Not Recovered/Not Resolved]

NARRATIVE: CASE EVENT DATE: 20230925
